FAERS Safety Report 22281261 (Version 1)
Quarter: 2023Q2

REPORT INFORMATION
  Report Type: Spontaneous
  Country: US (occurrence: None)
  Receive Date: 20230504
  Receipt Date: 20230504
  Transmission Date: 20230722
  Serious: No
  Sender: FDA-Public Use
  Company Number: US-Merck Healthcare KGaA-9396750

PATIENT
  Sex: Male

DRUGS (3)
  1. SEROSTIM [Suspect]
     Active Substance: SOMATROPIN
     Indication: Cachexia
     Route: 058
     Dates: start: 20200514
  2. SEROSTIM [Suspect]
     Active Substance: SOMATROPIN
     Indication: Hypogonadism male
  3. GONADOTROPHIN, CHORIONIC [Concomitant]
     Active Substance: GONADOTROPHIN, CHORIONIC
     Indication: Product used for unknown indication
     Dosage: LOW DOSES

REACTIONS (1)
  - Tendon rupture [Unknown]
